FAERS Safety Report 6011652-7 (Version None)
Quarter: 2008Q4

REPORT INFORMATION
  Report Type: 
  Country: None (occurrence: None)
  Receive Date: 20081218
  Receipt Date: 19770718
  Transmission Date: 20090506
  Serious: Yes (Death, Other)
  Sender: FDA-Public Use
  Company Number: CA-ROCHE-770800022001

PATIENT
  Sex: Female
  Weight: 45 kg

DRUGS (2)
  1. RIVOTRIL [Suspect]
     Route: 042
     Dates: start: 19770404, end: 19770404
  2. VALIUM [Suspect]
     Route: 065
     Dates: start: 19770404, end: 19770404

REACTIONS (4)
  - BRAIN OEDEMA [None]
  - DISEASE PROGRESSION [None]
  - DRUG INEFFECTIVE [None]
  - SUBARACHNOID HAEMORRHAGE [None]
